FAERS Safety Report 9061626 (Version 2)
Quarter: 2013Q1

REPORT INFORMATION
  Report Type: Spontaneous
  Country: IT (occurrence: IT)
  Receive Date: 20130204
  Receipt Date: 20130304
  Transmission Date: 20140127
  Serious: Yes (Hospitalization)
  Sender: FDA-Public Use
  Company Number: PHHY2013IT009597

PATIENT
  Sex: Male

DRUGS (3)
  1. TOLEP [Suspect]
     Indication: DRUG ABUSE
     Dosage: 18000 MG, ONCE/SINGLE
     Dates: start: 20130106, end: 20130106
  2. TEGRETOL [Suspect]
     Indication: DRUG ABUSE
     Dosage: 5400 MG, ONCE/SINGLE
     Route: 048
     Dates: start: 20130106, end: 20130106
  3. LYRICA [Suspect]
     Indication: DRUG ABUSE
     Dosage: 2250 MG, ONCE/SINGLE
     Route: 048
     Dates: start: 20130106, end: 20130106

REACTIONS (1)
  - Coma [Recovered/Resolved]
